FAERS Safety Report 13534773 (Version 3)
Quarter: 2018Q2

REPORT INFORMATION
  Report Type: Report from Study
  Country: DE (occurrence: DE)
  Receive Date: 20170511
  Receipt Date: 20180410
  Transmission Date: 20180711
  Serious: Yes (Hospitalization, Disabling)
  Sender: FDA-Public Use
  Company Number: DE-ROCHE-1878933

PATIENT
  Sex: Female

DRUGS (7)
  1. RISEDRONAT [Concomitant]
     Active Substance: RISEDRONATE SODIUM
  2. ENBREL [Suspect]
     Active Substance: ETANERCEPT
     Indication: RHEUMATOID ARTHRITIS
     Route: 065
     Dates: end: 20160510
  3. RAMIPRIL HCT [Concomitant]
     Active Substance: HYDROCHLOROTHIAZIDE\RAMIPRIL
  4. COLECALCIFEROL [Concomitant]
     Active Substance: CHOLECALCIFEROL
  5. BECLOMETASONE/FORMOTEROL [Concomitant]
  6. TOCILIZUMAB. [Suspect]
     Active Substance: TOCILIZUMAB
     Indication: RHEUMATOID ARTHRITIS
     Route: 058
     Dates: start: 20160517
  7. PREDNISOLON [Concomitant]
     Active Substance: PREDNISOLONE

REACTIONS (3)
  - Alveolitis [Unknown]
  - Pulmonary fibrosis [Recovered/Resolved with Sequelae]
  - Carbon monoxide diffusing capacity decreased [Not Recovered/Not Resolved]

NARRATIVE: CASE EVENT DATE: 201702
